FAERS Safety Report 5334206-4 (Version None)
Quarter: 2007Q2

REPORT INFORMATION
  Report Type: 
  Country: None (occurrence: None)
  Receive Date: 20070510
  Receipt Date: 20070424
  Transmission Date: 20071010
  Serious: No
  Sender: FDA-Public Use
  Company Number: AECAN200700091

PATIENT
  Age: 67 Year
  Sex: Female
  Weight: 74.8435 kg

DRUGS (6)
  1. IMMUNE GLOBULIN (HUMAN) [Suspect]
     Indication: IDIOPATHIC THROMBOCYTOPENIC PURPURA
     Dosage: 30 GM; QD; IV
     Route: 042
     Dates: start: 20070313, end: 20070317
  2. IMMUNE GLOBULIN (HUMAN) [Suspect]
  3. ZESTORETIC [Concomitant]
  4. EZETROL [Concomitant]
  5. ZOPICLONE [Concomitant]
  6. ATENSTOL [Concomitant]

REACTIONS (9)
  - ASTHENIA [None]
  - CHEST PAIN [None]
  - COLD SWEAT [None]
  - DIZZINESS [None]
  - DYSPNOEA [None]
  - FEELING COLD [None]
  - NAUSEA [None]
  - NODULE [None]
  - SKIN DISCOLOURATION [None]
